FAERS Safety Report 13049366 (Version 1)
Quarter: 2016Q4

REPORT INFORMATION
  Report Type: Report from Study
  Country: None (occurrence: RO)
  Receive Date: 20161221
  Receipt Date: 20161221
  Transmission Date: 20170207
  Serious: Yes (Death)
  Sender: FDA-Public Use
  Company Number: RO-ABBVIE-16P-135-1816377-00

PATIENT
  Age: 71 Year
  Sex: Male

DRUGS (3)
  1. RIVOTRIL [Concomitant]
     Active Substance: CLONAZEPAM
     Indication: INSOMNIA
     Route: 048
     Dates: start: 2010, end: 20161213
  2. DUODOPA [Suspect]
     Active Substance: CARBIDOPA\LEVODOPA
     Indication: PARKINSON^S DISEASE
     Dosage: 6ML/3.5ML/4 ML (24 H)
     Route: 050
     Dates: start: 20100212, end: 20161213
  3. LEPONEX [Concomitant]
     Active Substance: CLOZAPINE
     Indication: COGNITIVE DISORDER
     Route: 048
     Dates: start: 2010, end: 20161213

REACTIONS (1)
  - Cardio-respiratory arrest [Fatal]

NARRATIVE: CASE EVENT DATE: 20161213
